FAERS Safety Report 19351987 (Version 2)
Quarter: 2021Q2

REPORT INFORMATION
  Report Type: Spontaneous
  Country: GB (occurrence: GB)
  Receive Date: 20210601
  Receipt Date: 20210630
  Transmission Date: 20210717
  Serious: Yes (Life-Threatening, Other)
  Sender: FDA-Public Use
  Company Number: GB-PFIZER INC-2021568614

PATIENT
  Age: 46 Year
  Sex: Female
  Weight: 123.82 kg

DRUGS (1)
  1. TOZINAMERAN. [Suspect]
     Active Substance: TOZINAMERAN
     Indication: COVID-19 IMMUNISATION
     Dosage: DOSE NUMBER UNKNOWN, SINGLE
     Dates: start: 20210226, end: 20210226

REACTIONS (5)
  - Platelet count decreased [Unknown]
  - Haemorrhage [Recovering/Resolving]
  - Contusion [Recovering/Resolving]
  - Head discomfort [Recovering/Resolving]
  - Vaginal haemorrhage [Recovered/Resolved]

NARRATIVE: CASE EVENT DATE: 20210228
